FAERS Safety Report 16201858 (Version 1)
Quarter: 2019Q2

REPORT INFORMATION
  Report Type: Spontaneous
  Country: US (occurrence: US)
  Receive Date: 20190415
  Receipt Date: 20190415
  Transmission Date: 20190711
  Serious: Yes (Other)
  Sender: FDA-Public Use
  Company Number: None

PATIENT
  Age: 51 Year
  Sex: Male
  Weight: 108.9 kg

DRUGS (5)
  1. LEVOTHYROXINE. [Concomitant]
     Active Substance: LEVOTHYROXINE
  2. CAPECITABINE. [Suspect]
     Active Substance: CAPECITABINE
     Indication: TONSIL CANCER
     Route: 048
     Dates: start: 20190314
  3. MAGNESIUM [Concomitant]
     Active Substance: MAGNESIUM
  4. CLONAZEPAM. [Concomitant]
     Active Substance: CLONAZEPAM
  5. MINOCYCLINE [Concomitant]
     Active Substance: MINOCYCLINE\MINOCYCLINE HYDROCHLORIDE

REACTIONS (2)
  - Liver function test abnormal [None]
  - Blood bilirubin abnormal [None]

NARRATIVE: CASE EVENT DATE: 20190415
